FAERS Safety Report 9019536 (Version 1)
Quarter: 2013Q1

REPORT INFORMATION
  Report Type: Spontaneous
  Country: US (occurrence: US)
  Receive Date: 20130118
  Receipt Date: 20130118
  Transmission Date: 20140127
  Serious: Yes (Hospitalization, Other)
  Sender: FDA-Public Use
  Company Number: US-TEVA-381019USA

PATIENT
  Sex: Male

DRUGS (1)
  1. VORICONAZOLE [Suspect]
     Indication: MENINGITIS FUNGAL

REACTIONS (6)
  - Bone abscess [Unknown]
  - Staphylococcal infection [Unknown]
  - Balance disorder [Unknown]
  - Coordination abnormal [Unknown]
  - Dizziness [Unknown]
  - Vision blurred [Unknown]
